FAERS Safety Report 8949587 (Version 1)
Quarter: 2012Q4

REPORT INFORMATION
  Report Type: Report from Study
  Country: US (occurrence: US)
  Receive Date: 20121206
  Receipt Date: 20121206
  Transmission Date: 20130627
  Serious: Yes (Hospitalization, Other)
  Sender: FDA-Public Use
  Company Number: US-ABBOTT-12P-163-1013435-00

PATIENT
  Sex: Male
  Weight: 83.54 kg

DRUGS (5)
  1. HUMIRA [Suspect]
     Indication: RHEUMATOID ARTHRITIS
     Dates: start: 2008, end: 2010
  2. HUMIRA [Suspect]
     Dates: start: 2010, end: 2010
  3. HUMIRA [Suspect]
  4. TRAMADOL [Concomitant]
     Indication: BACK PAIN
  5. LISINOPRIL [Concomitant]
     Indication: HYPERTENSION

REACTIONS (3)
  - Rotator cuff syndrome [Recovered/Resolved]
  - Infected bites [Recovered/Resolved]
  - Animal bite [Recovered/Resolved]
